FAERS Safety Report 8163074-0 (Version None)
Quarter: 2012Q1

REPORT INFORMATION
  Report Type: 
  Country: None (occurrence: None)
  Receive Date: 20120224
  Receipt Date: 20120221
  Transmission Date: 20120608
  Serious: Yes (Other)
  Sender: FDA-Public Use
  Company Number: US-GLAXOSMITHKLINE-A0966721A

PATIENT
  Age: 64 Year
  Sex: Male

DRUGS (3)
  1. DOXAZOSIN [Concomitant]
  2. THYROID MEDICATION [Concomitant]
  3. AVODART [Suspect]
     Indication: BENIGN PROSTATIC HYPERPLASIA
     Dosage: 1CAP PER DAY
     Route: 048
     Dates: start: 20101201

REACTIONS (7)
  - MUSCLE TIGHTNESS [None]
  - MUSCLE ATROPHY [None]
  - WEIGHT DECREASED [None]
  - PARAESTHESIA [None]
  - TENDON DISORDER [None]
  - BLOOD TESTOSTERONE DECREASED [None]
  - BURNING SENSATION [None]
